FAERS Safety Report 5656707-1 (Version None)
Quarter: 2008Q1

REPORT INFORMATION
  Report Type: 
  Country: None (occurrence: None)
  Receive Date: 20080310
  Receipt Date: 20080219
  Transmission Date: 20080703
  Serious: Yes (Hospitalization, Other)
  Sender: FDA-Public Use
  Company Number: US-NOVOPROD-272434

PATIENT
  Sex: Male
  Weight: 83 kg

DRUGS (17)
  1. NOVOLOG [Suspect]
     Indication: DIABETES MELLITUS
     Dosage: UNKNOWN
     Route: 058
  2. SUTENT [Suspect]
     Indication: RENAL CELL CARCINOMA
     Dosage: 50 MG, QD
     Route: 048
     Dates: start: 20071012, end: 20071101
  3. COMPAZINE                          /00013302/ [Concomitant]
     Indication: NAUSEA
     Dosage: UNK, PRN
     Route: 048
  4. OXYCODONE HCL [Concomitant]
     Route: 048
  5. DILAUDID [Concomitant]
     Route: 048
  6. ASPIRIN [Concomitant]
     Route: 048
  7. DOXAZOSIN MESYLATE [Concomitant]
     Route: 048
  8. ALBUTEROL [Concomitant]
     Route: 055
  9. SPIRIVA [Concomitant]
     Route: 055
  10. INSULIN [Concomitant]
  11. GLIPIZIDE [Concomitant]
     Route: 048
  12. HYDROCHLOROTHIAZIDE [Concomitant]
     Route: 048
  13. METOPROLOL TARTRATE [Concomitant]
     Route: 048
  14. PRAVASTATIN [Concomitant]
     Route: 048
  15. FLUOXETINE [Concomitant]
  16. RANTIDINE [Concomitant]
     Route: 048
  17. FENTANYL [Concomitant]

REACTIONS (2)
  - BLOOD CREATININE INCREASED [None]
  - HYPOGLYCAEMIA [None]
